FAERS Safety Report 8985563 (Version 2)
Quarter: 2013Q1

REPORT INFORMATION
  Report Type: Spontaneous
  Country: US (occurrence: US)
  Receive Date: 20121226
  Receipt Date: 20130222
  Transmission Date: 20140127
  Serious: Yes (Hospitalization)
  Sender: FDA-Public Use
  Company Number: US-ASTRAZENECA-2012SE94938

PATIENT
  Age: 2 Month
  Sex: Female
  Weight: 4.5 kg

DRUGS (2)
  1. SYNAGIS [Suspect]
     Indication: NEUTROPENIA
     Route: 030
     Dates: start: 20121210, end: 20121210
  2. ACTIHIB [Suspect]
     Indication: IMMUNISATION
     Dosage: 0.5 ML ONCE EVERY TWO MONTHS
     Route: 030
     Dates: start: 20121210

REACTIONS (4)
  - Respiratory arrest [Recovered/Resolved]
  - Cyanosis [Recovered/Resolved]
  - Crying [None]
  - Hyperhidrosis [None]
